FAERS Safety Report 22829116 (Version 2)
Quarter: 2024Q2

REPORT INFORMATION
  Report Type: Report from Study
  Country: US (occurrence: US)
  Receive Date: 20230816
  Receipt Date: 20240524
  Transmission Date: 20240716
  Serious: Yes (Other)
  Sender: FDA-Public Use
  Company Number: US-AURINIA PHARMACEUTICALS INC.-AUR-003538

PATIENT
  Age: 35 Year
  Sex: Male

DRUGS (4)
  1. LUPKYNIS [Suspect]
     Active Substance: VOCLOSPORIN
     Indication: Lupus nephritis
     Dosage: 23.7 MILLIGRAM, BID
     Route: 048
     Dates: start: 20220614
  2. LUPKYNIS [Suspect]
     Active Substance: VOCLOSPORIN
     Dosage: 23.7 MILLIGRAM, BID
     Route: 048
     Dates: start: 20220614
  3. LUPKYNIS [Suspect]
     Active Substance: VOCLOSPORIN
     Dosage: 15.8 MILLIGRAM, BID
     Route: 048
     Dates: start: 20240516
  4. HYDROXYCHLOROQUINE SULFATE [Concomitant]
     Active Substance: HYDROXYCHLOROQUINE SULFATE
     Indication: Product used for unknown indication
     Dosage: 400 MILLIGRAM, QD

REACTIONS (16)
  - Blood creatinine increased [Not Recovered/Not Resolved]
  - Pain in extremity [Unknown]
  - Peripheral swelling [Unknown]
  - Grip strength decreased [Unknown]
  - Raynaud^s phenomenon [Unknown]
  - Psoriasis [Not Recovered/Not Resolved]
  - Arthralgia [Unknown]
  - Arthritis [Unknown]
  - Infection [Unknown]
  - White blood cell count increased [Unknown]
  - Red blood cell sedimentation rate increased [Unknown]
  - Joint swelling [Not Recovered/Not Resolved]
  - Proteinuria [Recovering/Resolving]
  - Fatigue [Unknown]
  - Glomerular filtration rate decreased [Not Recovered/Not Resolved]
  - Hypertension [Unknown]

NARRATIVE: CASE EVENT DATE: 20240516
